FAERS Safety Report 18786390 (Version 1)
Quarter: 2021Q1

REPORT INFORMATION
  Report Type: Spontaneous
  Country: ES (occurrence: ES)
  Receive Date: 20210126
  Receipt Date: 20210126
  Transmission Date: 20210419
  Serious: Yes (Other)
  Sender: FDA-Public Use
  Company Number: ES-AMGEN-ESPSP2021011443

PATIENT
  Age: 56 Year
  Sex: Female

DRUGS (10)
  1. NEBIVOLOL. [Concomitant]
     Active Substance: NEBIVOLOL
     Indication: MIGRAINE
     Dosage: 5 MILLIGRAM, Q12H
     Route: 048
     Dates: start: 202007
  2. ETORICOXIB. [Concomitant]
     Active Substance: ETORICOXIB
     Indication: MIGRAINE
     Dosage: 90 MILLIGRAM PRN (90 MG SEGUN DOLOR
     Route: 048
  3. ESCITALOPRAM [Concomitant]
     Active Substance: ESCITALOPRAM OXALATE
     Indication: MIGRAINE
     Dosage: 10 MILLIGRAM/24 H
     Route: 048
  4. ADIRO [Concomitant]
     Active Substance: ASPIRIN
     Indication: RAYNAUD^S PHENOMENON
     Dosage: UNK
     Route: 048
  5. BILASTINA [Concomitant]
     Active Substance: BILASTINE
     Indication: HYPERSENSITIVITY
     Dosage: 20 MILLIGRAM , Q24H
     Route: 048
     Dates: start: 2013
  6. TIBOLONA [Concomitant]
     Active Substance: TIBOLONE
     Indication: PRODUCT USED FOR UNKNOWN INDICATION
     Dosage: 2.5 MILLIGRAM Q24H (2.5 MG/24H)
     Route: 048
  7. AIMOVIG [Suspect]
     Active Substance: ERENUMAB-AOOE
     Indication: MIGRAINE
     Dosage: 140 MILLIGRAM, Q4WK (140 MG/4 SEMANAS)
     Route: 058
     Dates: start: 20201216, end: 20210112
  8. DICLOFENACO [DICLOFENAC] [Concomitant]
     Active Substance: DICLOFENAC
     Indication: MIGRAINE
     Dosage: 50 MILLIGRAM PRN (50 MG SEGUN DOLOR)
     Route: 048
  9. HEMOVAS [Concomitant]
     Indication: RAYNAUD^S PHENOMENON
     Dosage: 600 MG, Q12H
     Route: 048
  10. EUTIROX [Concomitant]
     Active Substance: LEVOTHYROXINE SODIUM
     Indication: HYPOTHYROIDISM
     Dosage: 100 MICROGRAM Q24H (100 MCG/24H)
     Route: 048

REACTIONS (1)
  - Raynaud^s phenomenon [Not Recovered/Not Resolved]

NARRATIVE: CASE EVENT DATE: 20201218
